FAERS Safety Report 25762539 (Version 2)
Quarter: 2025Q4

REPORT INFORMATION
  Report Type: Spontaneous
  Country: JP (occurrence: JP)
  Receive Date: 20250904
  Receipt Date: 20251124
  Transmission Date: 20260117
  Serious: Yes (Other)
  Sender: PFIZER
  Company Number: JP-ONO-2025JP015793

PATIENT
  Age: 8 Decade

DRUGS (6)
  1. BRAFTOVI [Suspect]
     Active Substance: ENCORAFENIB
     Indication: Thyroid cancer
     Dosage: UNK
     Route: 048
     Dates: start: 20250819, end: 20250822
  2. BRAFTOVI [Suspect]
     Active Substance: ENCORAFENIB
     Dosage: UNK
     Route: 048
  3. BRAFTOVI [Suspect]
     Active Substance: ENCORAFENIB
     Dosage: UNK
     Route: 048
     Dates: start: 20251110
  4. MEKTOVI [Suspect]
     Active Substance: BINIMETINIB
     Indication: Thyroid cancer
     Dosage: UNK
     Route: 048
     Dates: start: 20250819, end: 20250822
  5. MEKTOVI [Suspect]
     Active Substance: BINIMETINIB
     Dosage: UNK
     Route: 048
  6. MEKTOVI [Suspect]
     Active Substance: BINIMETINIB
     Dosage: UNK
     Route: 048
     Dates: start: 20251110

REACTIONS (5)
  - Renal impairment [Recovered/Resolved]
  - Haemoptysis [Recovered/Resolved]
  - Abdominal pain upper [Recovered/Resolved]
  - Retinal disorder [Unknown]
  - Off label use [Unknown]

NARRATIVE: CASE EVENT DATE: 20250819
